FAERS Safety Report 12709072 (Version 1)
Quarter: 2016Q3

REPORT INFORMATION
  Report Type: Spontaneous
  Country: US (occurrence: US)
  Receive Date: 20160901
  Receipt Date: 20160901
  Transmission Date: 20161109
  Serious: No
  Sender: FDA-Public Use
  Company Number: US-JAZZ-2016-US-008214

PATIENT
  Sex: Female

DRUGS (11)
  1. ADDERALL [Concomitant]
     Active Substance: AMPHETAMINE ASPARTATE\AMPHETAMINE SULFATE\DEXTROAMPHETAMINE SACCHARATE\DEXTROAMPHETAMINE SULFATE
  2. AMBIEN [Concomitant]
     Active Substance: ZOLPIDEM TARTRATE
  3. PROTONIX [Concomitant]
     Active Substance: PANTOPRAZOLE SODIUM
  4. REMERON [Concomitant]
     Active Substance: MIRTAZAPINE
  5. LACTULOSE. [Concomitant]
     Active Substance: LACTULOSE
  6. WELLBUTRIN [Concomitant]
     Active Substance: BUPROPION HYDROCHLORIDE
  7. XYREM [Suspect]
     Active Substance: SODIUM OXYBATE
     Indication: NARCOLEPSY
     Dosage: 2.25 G, BID
     Dates: start: 201604, end: 2016
  8. XYREM [Suspect]
     Active Substance: SODIUM OXYBATE
     Dosage: 3 G, BID
     Route: 048
     Dates: start: 2016
  9. XIFAXAN [Concomitant]
     Active Substance: RIFAXIMIN
  10. URSODIOL. [Concomitant]
     Active Substance: URSODIOL
  11. OMEPRAZOLE. [Concomitant]
     Active Substance: OMEPRAZOLE

REACTIONS (4)
  - Feeling abnormal [Unknown]
  - Unevaluable event [Unknown]
  - Abnormal dreams [Not Recovered/Not Resolved]
  - Hunger [Unknown]

NARRATIVE: CASE EVENT DATE: 2016
